FAERS Safety Report 4880682-0 (Version None)
Quarter: 2006Q1

REPORT INFORMATION
  Report Type: 
  Country: None (occurrence: None)
  Receive Date: 20060113
  Receipt Date: 20050317
  Transmission Date: 20060701
  Serious: Yes (Hospitalization, Other)
  Sender: FDA-Public Use
  Company Number: US-MERCK-0503USA03392

PATIENT
  Age: 59 Year
  Sex: Female
  Weight: 90 kg

DRUGS (15)
  1. VIOXX [Suspect]
     Route: 048
  2. ATARAX [Concomitant]
     Route: 065
  3. INDERAL [Concomitant]
     Indication: MIGRAINE
     Route: 065
  4. DARVOCET-N 50 [Concomitant]
     Route: 065
  5. CALCIUM (UNSPECIFIED) [Concomitant]
     Route: 065
  6. POTASSIUM (UNSPECIFIED) [Concomitant]
     Route: 065
  7. ATROVENT [Concomitant]
     Route: 065
  8. ALBUTEROL [Concomitant]
     Route: 055
  9. AZMACORT [Concomitant]
     Route: 055
  10. LOMOTIL [Concomitant]
     Route: 065
  11. VASOTEC [Suspect]
     Route: 048
  12. ELAVIL [Suspect]
     Route: 048
  13. LIBRIUM [Concomitant]
     Route: 065
  14. IMITREX [Concomitant]
     Route: 051
  15. RESTORIL [Suspect]
     Route: 065

REACTIONS (44)
  - ACUTE CORONARY SYNDROME [None]
  - ANAEMIA [None]
  - ANGINA PECTORIS [None]
  - ANXIETY [None]
  - ARTERIOSCLEROSIS [None]
  - BLOOD CALCIUM INCREASED [None]
  - BLOOD PRESSURE INCREASED [None]
  - BUNDLE BRANCH BLOCK LEFT [None]
  - CARDIAC FAILURE CONGESTIVE [None]
  - CARDIAC PSEUDOANEURYSM [None]
  - CARDIAC VALVE DISEASE [None]
  - CARDIOMYOPATHY [None]
  - CATARACT [None]
  - CHOLELITHIASIS [None]
  - CHRONIC OBSTRUCTIVE PULMONARY DISEASE [None]
  - CONSTIPATION [None]
  - CORONARY ARTERY DISEASE [None]
  - DECREASED APPETITE [None]
  - DEPRESSED LEVEL OF CONSCIOUSNESS [None]
  - DIABETES MELLITUS [None]
  - DILATATION ATRIAL [None]
  - DILATATION VENTRICULAR [None]
  - DIZZINESS [None]
  - EAR INFECTION [None]
  - EJECTION FRACTION DECREASED [None]
  - GASTROINTESTINAL HAEMORRHAGE [None]
  - HYPERLIPIDAEMIA [None]
  - LABYRINTHITIS [None]
  - MITRAL VALVE INCOMPETENCE [None]
  - MUSCLE TWITCHING [None]
  - MYOCARDIAL INFARCTION [None]
  - MYOCARDIAL ISCHAEMIA [None]
  - NAUSEA [None]
  - NOCTURIA [None]
  - PAPILLARY MUSCLE DISORDER [None]
  - PULMONARY HYPERTENSION [None]
  - RECTAL HAEMORRHAGE [None]
  - RECTAL POLYP [None]
  - SYNCOPE [None]
  - TACHYCARDIA [None]
  - TRANSIENT ISCHAEMIC ATTACK [None]
  - TREMOR [None]
  - URINARY TRACT INFECTION [None]
  - WEIGHT INCREASED [None]
